FAERS Safety Report 9437833 (Version 1)
Quarter: 2013Q3

REPORT INFORMATION
  Report Type: Spontaneous
  Country: US (occurrence: US)
  Receive Date: 20130802
  Receipt Date: 20130802
  Transmission Date: 20140515
  Serious: Yes (Hospitalization)
  Sender: FDA-Public Use
  Company Number: US-BRISTOL-MYERS SQUIBB COMPANY-18844795

PATIENT
  Age: 77 Year
  Sex: Female
  Weight: 92.97 kg

DRUGS (4)
  1. COUMADIN [Suspect]
     Indication: ATRIAL FIBRILLATION
     Dosage: 1DF=ONE 4 MG TAB ON MON,WED,THU,SAT; AND 1.5(6MG TOTAL)SUN,TUES,FRI
     Dates: start: 2006
  2. HEPARIN [Suspect]
     Indication: ATRIAL FIBRILLATION
  3. NAPROXEN [Suspect]
  4. DILTIAZEM HCL [Concomitant]

REACTIONS (1)
  - Rectal haemorrhage [Unknown]
